FAERS Safety Report 10664082 (Version 1)
Quarter: 2014Q4

REPORT INFORMATION
  Report Type: Spontaneous
  Country: US (occurrence: None)
  Receive Date: 20141208
  Receipt Date: 20141208
  Transmission Date: 20150529
  Serious: No
  Sender: FDA-Public Use
  Company Number: 2014TUS006937

PATIENT
  Sex: Female

DRUGS (1)
  1. BRINTELLIX [Suspect]
     Active Substance: VORTIOXETINE HYDROBROMIDE
     Indication: PRODUCT USED FOR UNKNOWN INDICATION
     Dates: start: 20140725, end: 20140730

REACTIONS (8)
  - Headache [None]
  - Photophobia [None]
  - Mood altered [None]
  - Fatigue [None]
  - Nausea [None]
  - Dizziness [None]
  - Feeling abnormal [None]
  - Abnormal dreams [None]

NARRATIVE: CASE EVENT DATE: 20140727
